FAERS Safety Report 8775304 (Version 1)
Quarter: 2012Q4

REPORT INFORMATION
  Report Type: 
  Country: CN (occurrence: CN)
  Receive Date: 20120910
  Receipt Date: 20120910
  Transmission Date: 20130627
  Serious: Yes (Hospitalization, Other)
  Sender: FDA-Public Use
  Company Number: CN-ABBOTT-12P-035-0977850-00

PATIENT
  Age: 60 Year
  Sex: Male

DRUGS (1)
  1. SODIUM VALPROATE [Suspect]
     Dosage: Daily
     Route: 048
     Dates: start: 20070701, end: 20110608

REACTIONS (5)
  - Pallor [Unknown]
  - Cyanosis [Unknown]
  - Anaemia [Recovering/Resolving]
  - Pancytopenia [Unknown]
  - Cyanosis [None]
